FAERS Safety Report 4317678-3 (Version None)
Quarter: 2004Q1

REPORT INFORMATION
  Report Type: 
  Country: None (occurrence: None)
  Receive Date: 20040315
  Receipt Date: 20040301
  Transmission Date: 20041129
  Serious: Yes (Life-Threatening, Hospitalization)
  Sender: FDA-Public Use
  Company Number: DE-BRISTOL-MYERS SQUIBB COMPANY-12521084

PATIENT
  Age: 75 Year
  Sex: Male

DRUGS (4)
  1. PACLITAXEL [Suspect]
     Indication: BRONCHIAL CARCINOMA
     Route: 042
     Dates: start: 20040212, end: 20040212
  2. DEXAMETHASONE [Concomitant]
     Indication: PREMEDICATION
     Route: 042
     Dates: start: 20040212, end: 20040212
  3. CLEMASTINE [Concomitant]
     Indication: PREMEDICATION
     Dates: start: 20040212, end: 20040212
  4. CIMETIDINE HCL [Concomitant]
     Indication: PREMEDICATION
     Dates: start: 20040212, end: 20040212

REACTIONS (1)
  - HYPERSENSITIVITY [None]
